FAERS Safety Report 8170079-2 (Version None)
Quarter: 2012Q1

REPORT INFORMATION
  Report Type: 
  Country: None (occurrence: None)
  Receive Date: 20120228
  Receipt Date: 20120227
  Transmission Date: 20120608
  Serious: No
  Sender: FDA-Public Use
  Company Number: US-PFIZER INC-2012051830

PATIENT
  Sex: Female
  Weight: 36.735 kg

DRUGS (1)
  1. CHANTIX [Suspect]
     Dosage: UNK

REACTIONS (5)
  - NAUSEA [None]
  - VOMITING [None]
  - DRY MOUTH [None]
  - EATING DISORDER [None]
  - MALAISE [None]
